FAERS Safety Report 20448786 (Version 3)
Quarter: 2022Q1

REPORT INFORMATION
  Report Type: Spontaneous
  Country: JP (occurrence: JP)
  Receive Date: 20220209
  Receipt Date: 20220317
  Transmission Date: 20220423
  Serious: Yes (Other)
  Sender: FDA-Public Use
  Company Number: JP-GSKNCCC-Case-01415101_AE-54540

PATIENT
  Age: 78 Year
  Sex: Male

DRUGS (6)
  1. SOTROVIMAB [Suspect]
     Active Substance: SOTROVIMAB
     Indication: COVID-19
     Dosage: 500 MG/100 ML/30MIN
     Route: 041
     Dates: start: 20220131, end: 20220131
  2. KREMEZIN [Concomitant]
     Active Substance: ACTIVATED CHARCOAL
     Indication: Chronic kidney disease
     Dosage: 500 MG
     Dates: start: 20220130, end: 20220207
  3. FEBUXOSTAT [Concomitant]
     Active Substance: FEBUXOSTAT
     Indication: Hyperuricaemia
     Dosage: 10 MG
     Dates: start: 20220130, end: 20220207
  4. AMLODIPINE BESYLATE [Concomitant]
     Active Substance: AMLODIPINE BESYLATE
     Indication: Hypertension
     Dosage: 10 MG
     Dates: start: 20220130, end: 20220207
  5. URALYT [Concomitant]
     Indication: Hyperuricaemia
     Dosage: 2 DF
     Dates: start: 20220130, end: 20220207
  6. DEQUALINIUM CHLORIDE [Concomitant]
     Active Substance: DEQUALINIUM CHLORIDE
     Dosage: UNK
     Dates: start: 20220131

REACTIONS (10)
  - Atrial fibrillation [Recovered/Resolved]
  - Syncope [Recovered/Resolved]
  - Infusion related reaction [Recovered/Resolved]
  - Palpitations [Recovered/Resolved]
  - Fall [Unknown]
  - Nausea [Unknown]
  - Chest pain [Unknown]
  - Back pain [Unknown]
  - Tachycardia [Unknown]
  - Blood pressure decreased [Recovered/Resolved]

NARRATIVE: CASE EVENT DATE: 20220131
